FAERS Safety Report 9297567 (Version 1)
Quarter: 2013Q2

REPORT INFORMATION
  Report Type: Spontaneous
  Country: US (occurrence: None)
  Receive Date: 20130517
  Receipt Date: 20130517
  Transmission Date: 20140414
  Serious: No
  Sender: FDA-Public Use
  Company Number: None

PATIENT
  Age: 61 Year
  Sex: Male

DRUGS (2)
  1. RIBAVIRIN [Suspect]
     Indication: HEPATITIS C
     Route: 048
     Dates: start: 20130316
  2. INCIVEK [Suspect]
     Dosage: Q7-9 HRS.
     Route: 048
     Dates: start: 20130508

REACTIONS (3)
  - Rash [None]
  - Rash [None]
  - Local swelling [None]
